FAERS Safety Report 18297539 (Version 2)
Quarter: 2020Q3

REPORT INFORMATION
  Report Type: Spontaneous
  Country: US (occurrence: US)
  Receive Date: 20200923
  Receipt Date: 20200925
  Transmission Date: 20201103
  Serious: Yes (Disabling, Other)
  Sender: FDA-Public Use
  Company Number: US-REGENERON PHARMACEUTICALS, INC.-2020-77149

PATIENT

DRUGS (2)
  1. EYLEA [Suspect]
     Active Substance: AFLIBERCEPT
     Indication: NEOVASCULAR AGE-RELATED MACULAR DEGENERATION
     Dosage: 2 MG, RIGHT EYE,  EVERY 4 WEEKS
     Route: 031
     Dates: start: 20200608, end: 20200608
  2. EYLEA [Suspect]
     Active Substance: AFLIBERCEPT
     Dosage: 2 MG, LEFT EYE, EVERY 4 WEEKS
     Route: 031
     Dates: start: 20200708, end: 20200708

REACTIONS (2)
  - Blindness [Unknown]
  - Drug ineffective [Unknown]
